FAERS Safety Report 21799555 (Version 1)
Quarter: 2022Q4

REPORT INFORMATION
  Report Type: Spontaneous
  Country: KR (occurrence: KR)
  Receive Date: 20221230
  Receipt Date: 20221230
  Transmission Date: 20230112
  Serious: Yes (Hospitalization, Other)
  Sender: FDA-Public Use
  Company Number: KR-GLAXOSMITHKLINE-KR2022APC192796

PATIENT

DRUGS (3)
  1. VENTOLIN [Suspect]
     Active Substance: ALBUTEROL SULFATE
     Indication: Chronic obstructive pulmonary disease
     Dosage: 10 MG, QID
  2. VENTOLIN [Suspect]
     Active Substance: ALBUTEROL SULFATE
     Indication: Chronic obstructive pulmonary disease
     Dosage: UNK
  3. SYMBICORT [Suspect]
     Active Substance: BUDESONIDE\FORMOTEROL FUMARATE DIHYDRATE
     Indication: Chronic obstructive pulmonary disease
     Dosage: UNK

REACTIONS (13)
  - Chronic obstructive pulmonary disease [Unknown]
  - Pulmonary function test decreased [Unknown]
  - Hypoxia [Unknown]
  - Dyspnoea [Unknown]
  - Pain [Unknown]
  - Illness [Unknown]
  - Drug interaction [Unknown]
  - Dysphonia [Unknown]
  - Oropharyngeal pain [Unknown]
  - Product use in unapproved indication [Unknown]
  - Off label use [Unknown]
  - Underdose [Unknown]
  - Drug ineffective [Unknown]
